FAERS Safety Report 9587447 (Version 3)
Quarter: 2013Q4

REPORT INFORMATION
  Report Type: Spontaneous
  Country: FR (occurrence: FR)
  Receive Date: 20131003
  Receipt Date: 20131102
  Transmission Date: 20140711
  Serious: Yes (Hospitalization)
  Sender: FDA-Public Use
  Company Number: FR-ABBVIE-13P-056-1153261-00

PATIENT
  Age: 46 Year
  Sex: Female

DRUGS (6)
  1. HUMIRA [Suspect]
     Indication: RHEUMATOID ARTHRITIS
     Route: 058
     Dates: start: 201002
  2. DAFALGAN [Concomitant]
     Indication: PRODUCT USED FOR UNKNOWN INDICATION
  3. NOVATREX [Concomitant]
     Indication: RHEUMATOID ARTHRITIS
     Route: 048
  4. NOVATREX [Concomitant]
     Route: 048
     Dates: start: 200805
  5. PANTOPRAZOLE [Concomitant]
     Indication: PRODUCT USED FOR UNKNOWN INDICATION
  6. SPECIAFOLDINE [Concomitant]
     Indication: RHEUMATOID ARTHRITIS
     Dates: start: 200805

REACTIONS (1)
  - Supraventricular tachycardia [Recovering/Resolving]
